FAERS Safety Report 5378175-X (Version None)
Quarter: 2007Q3

REPORT INFORMATION
  Report Type: 
  Country: None (occurrence: None)
  Receive Date: 20070705
  Receipt Date: 20070626
  Transmission Date: 20080115
  Serious: Yes (Other)
  Sender: FDA-Public Use
  Company Number: US-JNJFOC-20070606362

PATIENT
  Sex: Female
  Weight: 68.04 kg

DRUGS (5)
  1. DOXIL [Suspect]
     Indication: OVARIAN CANCER
     Route: 042
  2. MORPHINE [Concomitant]
     Indication: PAIN
     Route: 048
  3. MORPHINE [Concomitant]
     Route: 042
  4. MORPHINE [Concomitant]
  5. FENTANYL [Concomitant]
     Indication: PAIN
     Route: 059

REACTIONS (5)
  - ABDOMINAL PAIN [None]
  - CONSTIPATION [None]
  - OCULAR DISCOMFORT [None]
  - PHOTOPHOBIA [None]
  - VOMITING [None]
